FAERS Safety Report 9283948 (Version 1)
Quarter: 2013Q2

REPORT INFORMATION
  Report Type: Spontaneous
  Country: US (occurrence: US)
  Receive Date: 20130510
  Receipt Date: 20130510
  Transmission Date: 20140414
  Serious: No
  Sender: FDA-Public Use
  Company Number: US-COVIDIEN/TYCO HEALTHCARE/MALLINCKRODT-T201301769

PATIENT
  Age: 74 Year
  Sex: Female
  Weight: 77.98 kg

DRUGS (4)
  1. FENTANYL TRANSDERMAL SYSTEM [Suspect]
     Indication: BACK PAIN
     Dosage: 50 MCG/HR, Q 3 DAYS
     Route: 062
     Dates: start: 20130412, end: 20130422
  2. FENTANYL [Suspect]
     Dosage: UNK
     Dates: end: 201304
  3. SYNTHYROID [Concomitant]
     Indication: HYPOTHYROIDISM
     Dosage: UNK, QD
  4. METFORMIN [Concomitant]
     Indication: DIABETES MELLITUS
     Dosage: UNK, BID

REACTIONS (3)
  - Application site pain [Not Recovered/Not Resolved]
  - Application site erythema [Not Recovered/Not Resolved]
  - Application site pruritus [Not Recovered/Not Resolved]
